FAERS Safety Report 23744831 (Version 4)
Quarter: 2024Q3

REPORT INFORMATION
  Report Type: Report from Study
  Country: US (occurrence: US)
  Receive Date: 20240415
  Receipt Date: 20240725
  Transmission Date: 20241017
  Serious: Yes (Other)
  Sender: ABBVIE
  Company Number: US-ABBVIE-5634473

PATIENT
  Age: 64 Year
  Sex: Male

DRUGS (3)
  1. SKYRIZI [Suspect]
     Active Substance: RISANKIZUMAB-RZAA
     Indication: Psoriasis
     Route: 058
     Dates: start: 20230301
  2. SKYRIZI [Suspect]
     Active Substance: RISANKIZUMAB-RZAA
     Dosage: LAST ADMIN DATE 2023
     Route: 058
     Dates: start: 20230111
  3. SKYRIZI [Suspect]
     Active Substance: RISANKIZUMAB-RZAA
     Dosage: LAST ADMIN DATE 2023
     Route: 058
     Dates: start: 202302

REACTIONS (4)
  - Skin cancer [Recovering/Resolving]
  - Therapeutic response shortened [Unknown]
  - Psoriasis [Recovered/Resolved]
  - Metabolic surgery [Recovered/Resolved]

NARRATIVE: CASE EVENT DATE: 20240301
